FAERS Safety Report 9852983 (Version 1)
Quarter: 2014Q1

REPORT INFORMATION
  Report Type: Spontaneous
  Country: DE (occurrence: DE)
  Receive Date: 20140129
  Receipt Date: 20140129
  Transmission Date: 20141002
  Serious: Yes (Disabling)
  Sender: FDA-Public Use
  Company Number: DE-ASTRAZENECA-2014SE04300

PATIENT
  Age: 57 Year
  Sex: Female

DRUGS (2)
  1. DISOPRIVAN [Suspect]
     Indication: ANAESTHESIA
     Route: 042
  2. SULFENTANIL [Concomitant]
     Dates: start: 20120214

REACTIONS (2)
  - Anosmia [Not Recovered/Not Resolved]
  - Hypogeusia [Not Recovered/Not Resolved]
